FAERS Safety Report 11380014 (Version 1)
Quarter: 2015Q3

REPORT INFORMATION
  Report Type: Spontaneous
  Country: US (occurrence: US)
  Receive Date: 20150814
  Receipt Date: 20150814
  Transmission Date: 20151125
  Serious: No
  Sender: FDA-Public Use
  Company Number: US-ASTRAZENECA-2015SE75459

PATIENT
  Sex: Male
  Weight: 77.1 kg

DRUGS (1)
  1. BUDESONIDE. [Suspect]
     Active Substance: BUDESONIDE
     Indication: COLITIS MICROSCOPIC
     Route: 048
     Dates: start: 201402

REACTIONS (3)
  - Diarrhoea [Unknown]
  - Product use issue [Unknown]
  - Off label use [Unknown]
